FAERS Safety Report 24666896 (Version 2)
Quarter: 2024Q4

REPORT INFORMATION
  Report Type: Spontaneous
  Country: US (occurrence: US)
  Receive Date: 20241126
  Receipt Date: 20241219
  Transmission Date: 20250115
  Serious: Yes (Other)
  Sender: SANOFI AVENTIS
  Company Number: US-SA-2024SA342366

PATIENT
  Age: 40 Year
  Sex: Male

DRUGS (5)
  1. KEVZARA [Suspect]
     Active Substance: SARILUMAB
     Indication: Rheumatoid arthritis
     Dosage: 200 MG, QOW
     Route: 058
     Dates: start: 20241116
  2. DOXAZOSIN [Concomitant]
     Active Substance: DOXAZOSIN\DOXAZOSIN MESYLATE
  3. ELIQUIS [Concomitant]
     Active Substance: APIXABAN
  4. LISINOPRIL [Concomitant]
     Active Substance: LISINOPRIL
  5. PREDNISONE [Concomitant]
     Active Substance: PREDNISONE

REACTIONS (10)
  - Pneumonia [Unknown]
  - Peripheral swelling [Unknown]
  - Periorbital swelling [Unknown]
  - Joint effusion [Unknown]
  - Cough [Unknown]
  - Blister [Unknown]
  - Gait disturbance [Unknown]
  - Joint swelling [Unknown]
  - Rash [Unknown]
  - Upper respiratory tract infection [Unknown]

NARRATIVE: CASE EVENT DATE: 20240101
